FAERS Safety Report 14427483 (Version 2)
Quarter: 2019Q1

REPORT INFORMATION
  Report Type: Spontaneous
  Country: US (occurrence: US)
  Receive Date: 20180123
  Receipt Date: 20190303
  Transmission Date: 20190417
  Serious: No
  Sender: FDA-Public Use
  Company Number: US-IMPAX LABORATORIES, INC-2017-IPXL-03716

PATIENT
  Age: 77 Year
  Sex: Female

DRUGS (1)
  1. RYTARY [Suspect]
     Active Substance: CARBIDOPA\LEVODOPA
     Indication: PARKINSON^S DISEASE
     Dosage: 23.75/95 MG, 4 CAPSULES 5/DAY AND 4 CAPSULES OVERNIGHT AS NEEDED
     Route: 048

REACTIONS (4)
  - Drug effect delayed [Unknown]
  - Dyskinesia [Unknown]
  - Drug effect variable [Unknown]
  - Back pain [Not Recovered/Not Resolved]
